FAERS Safety Report 7546606-2 (Version None)
Quarter: 2011Q2

REPORT INFORMATION
  Report Type: 
  Country: None (occurrence: None)
  Receive Date: 20110614
  Receipt Date: 20110602
  Transmission Date: 20111010
  Serious: Yes (Hospitalization, Other)
  Sender: FDA-Public Use
  Company Number: US-BAYER-2010-003981

PATIENT
  Sex: Female
  Weight: 89 kg

DRUGS (3)
  1. YASMIN [Suspect]
     Indication: PRODUCT USED FOR UNKNOWN INDICATION
     Route: 048
  2. YAZ [Suspect]
     Dosage: UNK
     Dates: start: 20090401, end: 20090701
  3. FEOSOL [Concomitant]
     Indication: ANAEMIA OF PREGNANCY
     Dosage: UNK
     Dates: start: 20090529, end: 20090618

REACTIONS (10)
  - BILE DUCT STONE [None]
  - NAUSEA [None]
  - PSYCHIATRIC SYMPTOM [None]
  - CHOLELITHIASIS [None]
  - CHOLECYSTITIS [None]
  - DYSPEPSIA [None]
  - ABDOMINAL PAIN [None]
  - PAIN [None]
  - MUSCLE SPASMS [None]
  - DIARRHOEA [None]
